FAERS Safety Report 25686496 (Version 3)
Quarter: 2025Q3

REPORT INFORMATION
  Report Type: Spontaneous
  Country: US (occurrence: US)
  Receive Date: 20250815
  Receipt Date: 20250924
  Transmission Date: 20251020
  Serious: Yes (Hospitalization, Other)
  Sender: ANI
  Company Number: US-ANIPHARMA-2025-US-036995

PATIENT
  Age: 53 Year
  Sex: Female
  Weight: 63.05 kg

DRUGS (2)
  1. CORTICOTROPIN [Suspect]
     Active Substance: CORTICOTROPIN
     Indication: Rheumatoid arthritis
     Route: 058
     Dates: start: 20250521, end: 20250904
  2. PREDNISONE [Concomitant]
     Active Substance: PREDNISONE

REACTIONS (8)
  - Swelling face [Recovering/Resolving]
  - Paraesthesia [Recovering/Resolving]
  - Adrenal insufficiency [Unknown]
  - Migraine [Recovering/Resolving]
  - Diarrhoea [Recovering/Resolving]
  - Sepsis [Recovered/Resolved]
  - Vomiting [Recovering/Resolving]
  - Product dose omission issue [Recovered/Resolved]

NARRATIVE: CASE EVENT DATE: 20250601
